FAERS Safety Report 13952813 (Version 1)
Quarter: 2017Q3

REPORT INFORMATION
  Report Type: Spontaneous
  Country: US (occurrence: US)
  Receive Date: 20170911
  Receipt Date: 20170911
  Transmission Date: 20171128
  Serious: No
  Sender: FDA-Public Use
  Company Number: US-TEVA-758456USA

PATIENT
  Sex: Female

DRUGS (1)
  1. FENTANYL TRANSDERMAL SYSTEM [Suspect]
     Active Substance: FENTANYL

REACTIONS (5)
  - Application site rash [Unknown]
  - Application site erosion [Unknown]
  - Wrong technique in product usage process [None]
  - Product adhesion issue [Unknown]
  - Product use issue [Unknown]
